FAERS Safety Report 5162601-5 (Version None)
Quarter: 2006Q4

REPORT INFORMATION
  Report Type: 
  Country: None (occurrence: None)
  Receive Date: 20061201
  Receipt Date: 20061029
  Transmission Date: 20070319
  Serious: Yes (Disabling, Other)
  Sender: FDA-Public Use
  Company Number: US-ALLERGAN-0606873US

PATIENT
  Sex: Female

DRUGS (10)
  1. BOTOX [Suspect]
     Indication: MUSCLE SPASMS
     Dosage: 300 UNITS, SINGLE
     Route: 030
     Dates: start: 20060501, end: 20060501
  2. BOTOX [Suspect]
     Dosage: 200 UNITS, SINGLE
     Route: 030
     Dates: start: 20060130, end: 20060130
  3. ULTRACET [Concomitant]
     Indication: PAIN
     Route: 048
  4. MOBIC [Concomitant]
     Indication: PAIN
     Route: 048
  5. BACLOFEN [Concomitant]
     Indication: MUSCLE SPASMS
     Route: 048
  6. BACLOFEN [Concomitant]
     Dosage: 20 MG, UNK
     Route: 048
  7. BACLOFEN [Concomitant]
     Route: 048
  8. LIDODERM [Concomitant]
     Indication: PAIN
     Dosage: UNK, QD
     Route: 061
  9. PREVACID [Concomitant]
     Indication: STOMACH DISCOMFORT
     Route: 048
  10. PROVENTIL /00139501/ [Concomitant]
     Indication: DRUG USE FOR UNKNOWN INDICATION
     Route: 055

REACTIONS (9)
  - ASTHENIA [None]
  - HEMIPARESIS [None]
  - HYPOTENSION [None]
  - MUSCLE HYPERTROPHY [None]
  - MUSCULAR WEAKNESS [None]
  - MYALGIA [None]
  - PAIN [None]
  - THERAPEUTIC RESPONSE DECREASED [None]
  - VOMITING [None]
